FAERS Safety Report 7001390-6 (Version None)
Quarter: 2010Q3

REPORT INFORMATION
  Report Type: 
  Country: None (occurrence: None)
  Receive Date: 20100920
  Receipt Date: 20100112
  Transmission Date: 20110219
  Serious: No
  Sender: FDA-Public Use
  Company Number: US-ASTRAZENECA-2009UW20486

PATIENT
  Age: 51 Year
  Sex: Female
  Weight: 70.3 kg

DRUGS (12)
  1. SEROQUEL [Suspect]
     Indication: SCHIZOPHRENIA
     Dosage: 50 MG TO 300 MG
     Route: 048
     Dates: start: 19990101
  2. SEROQUEL [Suspect]
     Indication: BIPOLAR DISORDER
     Dosage: 50 MG TO 300 MG
     Route: 048
     Dates: start: 19990101
  3. SEROQUEL [Suspect]
     Indication: HOMICIDAL IDEATION
     Dosage: 50 MG TO 300 MG
     Route: 048
     Dates: start: 19990101
  4. SEROQUEL [Suspect]
     Indication: DEPRESSION
     Dosage: 50 MG TO 300 MG
     Route: 048
     Dates: start: 19990101
  5. SEROQUEL [Suspect]
     Indication: SUICIDAL IDEATION
     Dosage: 50 MG TO 300 MG
     Route: 048
     Dates: start: 19990101
  6. SEROQUEL [Suspect]
     Dosage: 4 TAB OF 500 MG AT NIGHT, 50 MG DAILY
     Route: 048
     Dates: start: 20030101, end: 20090101
  7. SEROQUEL [Suspect]
     Dosage: 4 TAB OF 500 MG AT NIGHT, 50 MG DAILY
     Route: 048
     Dates: start: 20030101, end: 20090101
  8. SEROQUEL [Suspect]
     Dosage: 4 TAB OF 500 MG AT NIGHT, 50 MG DAILY
     Route: 048
     Dates: start: 20030101, end: 20090101
  9. SEROQUEL [Suspect]
     Dosage: 4 TAB OF 500 MG AT NIGHT, 50 MG DAILY
     Route: 048
     Dates: start: 20030101, end: 20090101
  10. SEROQUEL [Suspect]
     Dosage: 4 TAB OF 500 MG AT NIGHT, 50 MG DAILY
     Route: 048
     Dates: start: 20030101, end: 20090101
  11. STARLIX [Concomitant]
     Indication: TYPE 2 DIABETES MELLITUS
  12. ABILIFY [Concomitant]
     Dosage: 5-10 MG DAILY

REACTIONS (2)
  - PNEUMOCYSTIS JIROVECI PNEUMONIA [None]
  - TYPE 2 DIABETES MELLITUS [None]
